FAERS Safety Report 23323959 (Version 5)
Quarter: 2024Q1

REPORT INFORMATION
  Report Type: Spontaneous
  Country: US (occurrence: US)
  Receive Date: 20231221
  Receipt Date: 20240210
  Transmission Date: 20240409
  Serious: No
  Sender: FDA-Public Use
  Company Number: US-GLAXOSMITHKLINE-US2023AMR176948

PATIENT
  Sex: Female

DRUGS (2)
  1. ZEJULA [Suspect]
     Active Substance: NIRAPARIB
     Indication: Ovarian cancer
     Dosage: 300 MG, QD
     Dates: end: 20240110
  2. UNSPECIFIED INGREDIENT [Concomitant]
     Active Substance: UNSPECIFIED INGREDIENT
     Indication: Urinary tract infection
     Dosage: UNK

REACTIONS (15)
  - Thyroid hormones increased [Unknown]
  - Blood insulin abnormal [Unknown]
  - Blood glucose abnormal [Recovering/Resolving]
  - Arthralgia [Unknown]
  - Blood test abnormal [Recovering/Resolving]
  - Decreased activity [Unknown]
  - Petechiae [Unknown]
  - Contusion [Unknown]
  - White blood cell count decreased [Unknown]
  - Platelet count decreased [Recovering/Resolving]
  - Anaemia [Unknown]
  - Rash macular [Unknown]
  - Asthenia [Unknown]
  - Blood glucose increased [Unknown]
  - Haemoglobin decreased [Unknown]
